FAERS Safety Report 9754483 (Version 2)
Quarter: 2013Q4

REPORT INFORMATION
  Report Type: Spontaneous
  Country: FR (occurrence: FR)
  Receive Date: 20131213
  Receipt Date: 20131213
  Transmission Date: 20140711
  Serious: Yes (Other)
  Sender: FDA-Public Use
  Company Number: FR-BAUSCH-BL-2013-005006

PATIENT
  Age: 86 Year
  Sex: Male

DRUGS (6)
  1. YELLOX 0.9 MG/ML EYE DROPS, SOLUTION [Suspect]
     Indication: POSTOPERATIVE CARE
     Route: 047
     Dates: start: 20130629
  2. YELLOX 0.9 MG/ML EYE DROPS, SOLUTION [Suspect]
     Indication: CATARACT OPERATION
     Route: 047
     Dates: start: 20130713
  3. CHIBRO-CADRON [Concomitant]
     Indication: POSTOPERATIVE CARE
     Route: 047
     Dates: start: 20130629
  4. CHIBRO-CADRON [Concomitant]
     Indication: CATARACT OPERATION
     Route: 047
     Dates: start: 20130713
  5. CILOXAN [Concomitant]
     Indication: POSTOPERATIVE CARE
     Route: 047
     Dates: start: 20130629
  6. CILOXAN [Concomitant]
     Indication: CATARACT OPERATION
     Route: 047
     Dates: start: 20130713

REACTIONS (1)
  - Cystoid macular oedema [Recovering/Resolving]
